FAERS Safety Report 16649303 (Version 1)
Quarter: 2019Q3

REPORT INFORMATION
  Report Type: Report from Study
  Country: US (occurrence: US)
  Receive Date: 20190730
  Receipt Date: 20190730
  Transmission Date: 20191004
  Serious: Yes (Hospitalization, Other)
  Sender: FDA-Public Use
  Company Number: US-JNJFOC-20190719040

PATIENT
  Sex: Male

DRUGS (2)
  1. IMBRUVICA [Suspect]
     Active Substance: IBRUTINIB
     Dosage: 420 MG, QD
     Route: 048
     Dates: start: 20190327, end: 2019
  2. IMBRUVICA [Suspect]
     Active Substance: IBRUTINIB
     Indication: GRAFT VERSUS HOST DISEASE
     Dosage: 420 MG, QD
     Route: 048
     Dates: start: 20190326

REACTIONS (3)
  - Increased tendency to bruise [Unknown]
  - Diabetic foot [Recovering/Resolving]
  - Thrombosis [Unknown]

NARRATIVE: CASE EVENT DATE: 2019
